FAERS Safety Report 13755891 (Version 2)
Quarter: 2020Q4

REPORT INFORMATION
  Report Type: Report from Study
  Country: BR (occurrence: BR)
  Receive Date: 20170714
  Receipt Date: 20201211
  Transmission Date: 20210113
  Serious: Yes (Other)
  Sender: FDA-Public Use
  Company Number: PHHY2017BR101336

PATIENT
  Sex: Female
  Weight: 122 kg

DRUGS (3)
  1. GALVUS MET [Suspect]
     Active Substance: METFORMIN HYDROCHLORIDE\VILDAGLIPTIN
     Dosage: UNK
     Route: 048
  2. GALVUS MET [Suspect]
     Active Substance: METFORMIN HYDROCHLORIDE\VILDAGLIPTIN
     Indication: GLUCOSE TOLERANCE IMPAIRED
     Dosage: 1 DF, BID (ONE IN THE MORNING AFTER BREAKFAST AND ONE AT BEDTIME AT NIGHT)
     Route: 048
  3. FORASEQ [Suspect]
     Active Substance: BUDESONIDE\FORMOTEROL FUMARATE
     Indication: DYSPNOEA
     Dosage: 1 DF, BID (EARLY MORNING AND AT BEDTIME AT NIGHT)
     Route: 065

REACTIONS (11)
  - Fall [Unknown]
  - Breast cancer [Recovering/Resolving]
  - Tendon rupture [Unknown]
  - Stress [Unknown]
  - Tendon pain [Not Recovered/Not Resolved]
  - Pain in extremity [Not Recovered/Not Resolved]
  - Nervousness [Unknown]
  - Arthralgia [Unknown]
  - Sensitivity to weather change [Unknown]
  - Malaise [Unknown]
  - Product use in unapproved indication [Unknown]
